FAERS Safety Report 4342421-1 (Version None)
Quarter: 2004Q2

REPORT INFORMATION
  Report Type: 
  Country: None (occurrence: None)
  Receive Date: 20040420
  Receipt Date: 20040420
  Transmission Date: 20050107
  Serious: Yes (Hospitalization)
  Sender: FDA-Public Use
  Company Number: None

PATIENT
  Age: 20 Year
  Sex: Female
  Weight: 94.55 kg

DRUGS (1)
  1. IRON DEXTRAN [Suspect]
     Indication: IRON DEFICIENCY ANAEMIA
     Dosage: 500 MG IV
     Route: 042
     Dates: start: 20040222

REACTIONS (3)
  - CONVULSION [None]
  - DYSPNOEA [None]
  - HYPERSENSITIVITY [None]
